FAERS Safety Report 14313395 (Version 2)
Quarter: 2018Q1

REPORT INFORMATION
  Report Type: Spontaneous
  Country: JP (occurrence: JP)
  Receive Date: 20171221
  Receipt Date: 20180306
  Transmission Date: 20180509
  Serious: Yes (Death, Life-Threatening)
  Sender: FDA-Public Use
  Company Number: JP-ACTELION-A-CH2017-164226

PATIENT
  Age: 57 Year
  Sex: Female

DRUGS (16)
  1. WARFARIN [Concomitant]
     Active Substance: WARFARIN
  2. EPOPROSTENOL ACT [Suspect]
     Active Substance: EPOPROSTENOL
     Dosage: 10 NG/KG, PER MIN
     Route: 042
     Dates: start: 20150909, end: 20150909
  3. URSO [Concomitant]
     Active Substance: URSODIOL
  4. EPOPROSTENOL ACT [Suspect]
     Active Substance: EPOPROSTENOL
     Indication: PULMONARY ARTERIAL HYPERTENSION
     Dosage: 5 NG/KG, PER MIN
     Route: 042
     Dates: start: 20150818
  5. EPOPROSTENOL ACT [Suspect]
     Active Substance: EPOPROSTENOL
     Dosage: 11 NG/KG, PER MIN
     Route: 042
  6. LASIX [Concomitant]
     Active Substance: FUROSEMIDE
  7. GASMOTIN [Concomitant]
     Active Substance: MOSAPRIDE CITRATE
  8. FAMOTIDINE. [Concomitant]
     Active Substance: FAMOTIDINE
  9. EPOPROSTENOL ACT [Suspect]
     Active Substance: EPOPROSTENOL
     Dosage: 12.5 NG/KG, PER MIN
     Route: 042
  10. SAMSCA [Concomitant]
     Active Substance: TOLVAPTAN
  11. ALDACTONE A [Concomitant]
     Active Substance: SPIRONOLACTONE
  12. OPSUMIT [Concomitant]
     Active Substance: MACITENTAN
     Route: 048
  13. BEPRICOR [Concomitant]
     Active Substance: BEPRIDIL
  14. ADEMPAS [Concomitant]
     Active Substance: RIOCIGUAT
  15. OXYGEN. [Concomitant]
     Active Substance: OXYGEN
  16. MAGLAX [Concomitant]
     Active Substance: MAGNESIUM OXIDE

REACTIONS (4)
  - Death [Fatal]
  - Ascites [Not Recovered/Not Resolved]
  - Cardiac failure [Not Recovered/Not Resolved]
  - Dehydration [Not Recovered/Not Resolved]

NARRATIVE: CASE EVENT DATE: 201508
